FAERS Safety Report 4744734-8 (Version None)
Quarter: 2005Q3

REPORT INFORMATION
  Report Type: 
  Country: None (occurrence: None)
  Receive Date: 20050815
  Receipt Date: 20050720
  Transmission Date: 20060218
  Serious: Yes (Hospitalization, Disabling)
  Sender: FDA-Public Use
  Company Number: JP-BRISTOL-MYERS SQUIBB COMPANY-13045422

PATIENT
  Age: 68 Year
  Sex: Male

DRUGS (2)
  1. MITOMYCIN [Suspect]
     Indication: GLAUCOMA
     Route: 031
  2. OFLOXACIN [Concomitant]
     Indication: INFECTION PROPHYLAXIS
     Route: 031

REACTIONS (1)
  - ENDOPHTHALMITIS [None]
